FAERS Safety Report 21248562 (Version 3)
Quarter: 2022Q4

REPORT INFORMATION
  Report Type: Report from Study
  Country: BE (occurrence: BE)
  Receive Date: 20220824
  Receipt Date: 20221010
  Transmission Date: 20230112
  Serious: Yes (Other)
  Sender: FDA-Public Use
  Company Number: BE-SEATTLE GENETICS-2022SGN06237

PATIENT
  Age: 66 Year
  Sex: Female
  Weight: 68 kg

DRUGS (22)
  1. TRASTUZUMAB [Suspect]
     Active Substance: TRASTUZUMAB
     Indication: Breast cancer
     Dosage: 6 MG/KG, EVERY 3 WEEKS
     Route: 042
  2. TRASTUZUMAB [Suspect]
     Active Substance: TRASTUZUMAB
     Dosage: 8 MG/KG, SINGLE
     Route: 042
     Dates: start: 20220203
  3. TUCATINIB [Suspect]
     Active Substance: TUCATINIB
     Indication: Breast cancer
     Dosage: 400 MG (2X200 MG), BID
     Route: 048
     Dates: start: 20220224
  4. TUCATINIB [Suspect]
     Active Substance: TUCATINIB
     Dosage: UP TO 150 MG BID
     Route: 048
  5. TUCATINIB [Suspect]
     Active Substance: TUCATINIB
     Dosage: 300 MG BID
     Route: 048
     Dates: start: 20220203
  6. TUCATINIB [Suspect]
     Active Substance: TUCATINIB
     Dosage: 200 MG, 2X/DAY
     Route: 048
     Dates: start: 20220224
  7. TUCATINIB [Suspect]
     Active Substance: TUCATINIB
     Dosage: 300 MG, 2X/DAY
     Route: 048
     Dates: start: 20220203
  8. TUCATINIB [Suspect]
     Active Substance: TUCATINIB
     Dosage: 150 MG, 2X/DAY
     Route: 048
     Dates: start: 20220414, end: 20220505
  9. CAPECITABINE [Suspect]
     Active Substance: CAPECITABINE
     Indication: Breast cancer
     Dosage: 582 MG/M2, BID
     Route: 048
     Dates: end: 20220505
  10. CAPECITABINE [Suspect]
     Active Substance: CAPECITABINE
     Dosage: 800 MG/M2, 2X/DAY
     Route: 048
     Dates: start: 20220203
  11. LEVETIRACETAM [Concomitant]
     Active Substance: LEVETIRACETAM
     Dosage: 2000 MG, DAILY
     Route: 048
  12. LEVETIRACETAM [Concomitant]
     Active Substance: LEVETIRACETAM
     Dosage: 1000 MG, 2X/DAY
     Route: 048
  13. VITAPANTOL [Concomitant]
     Dosage: 1 DF, 3X/DAY (NASAL OINTMENT)
  14. CINNARIZINE [Concomitant]
     Active Substance: CINNARIZINE
     Dosage: 75 MG
     Route: 048
  15. CINNARIZINE [Concomitant]
     Active Substance: CINNARIZINE
     Dosage: 25 MG, TID
     Route: 048
  16. METHYLPREDNISOLONE [Concomitant]
     Active Substance: METHYLPREDNISOLONE
     Dosage: 4 MG, DAILY
     Route: 048
  17. METHYLPREDNISOLONE [Concomitant]
     Active Substance: METHYLPREDNISOLONE
     Dosage: 32 MG (1/2 TABLET), DAILY
     Route: 048
  18. XGEVA [Concomitant]
     Active Substance: DENOSUMAB
     Dosage: 1.7 ML, MONTHLY (EVERY 4 WEEKS)
     Route: 058
  19. BETAHISTINE [Concomitant]
     Active Substance: BETAHISTINE
     Dosage: 32 MG 1/2 TABLET, QD
  20. BETAHISTINE [Concomitant]
     Active Substance: BETAHISTINE
     Dosage: 24 MG, 3X/DAY
     Route: 048
  21. CYANOCOBALAMIN\PYRIDOXINE HYDROCHLORIDE\RIBOFLAVIN\SODIUM PANTOTHENATE [Concomitant]
     Active Substance: CYANOCOBALAMIN\PYRIDOXINE HYDROCHLORIDE\RIBOFLAVIN\SODIUM PANTOTHENATE\THIAMINE HYDROCHLORIDE\VITAMI
     Dosage: 1 DF, 2X/DAY
     Route: 048
  22. ZOLPIDEM [Concomitant]
     Active Substance: ZOLPIDEM TARTRATE
     Dosage: 10 MG, DAILY
     Route: 048

REACTIONS (8)
  - Alanine aminotransferase increased [Not Recovered/Not Resolved]
  - Aspartate aminotransferase increased [Not Recovered/Not Resolved]
  - Palmar-plantar erythrodysaesthesia syndrome [Recovered/Resolved]
  - Diarrhoea [Unknown]
  - Asthenia [Unknown]
  - Blood bilirubin increased [Unknown]
  - Gamma-glutamyltransferase increased [Unknown]
  - Hepatic enzyme increased [Unknown]

NARRATIVE: CASE EVENT DATE: 20220203
